FAERS Safety Report 10041018 (Version 2)
Quarter: 2014Q2

REPORT INFORMATION
  Report Type: Spontaneous
  Country: US (occurrence: US)
  Receive Date: 20140327
  Receipt Date: 20140423
  Transmission Date: 20141212
  Serious: Yes (Hospitalization)
  Sender: FDA-Public Use
  Company Number: US-INCYTE CORPORATION-2014IN000724

PATIENT
  Age: 88 Year
  Sex: Male
  Weight: 53.52 kg

DRUGS (3)
  1. JAKAFI [Suspect]
     Indication: MYELOFIBROSIS
     Dosage: 10 MG, BID
     Route: 048
     Dates: start: 20130207
  2. PEPCID                             /00706001/ [Concomitant]
  3. COUMADIN                           /00014802/ [Concomitant]

REACTIONS (2)
  - Pneumonia [Unknown]
  - Chest pain [Unknown]
